FAERS Safety Report 15695942 (Version 2)
Quarter: 2019Q2

REPORT INFORMATION
  Report Type: Spontaneous
  Country: US (occurrence: US)
  Receive Date: 20181206
  Receipt Date: 20190626
  Transmission Date: 20190711
  Serious: No
  Sender: FDA-Public Use
  Company Number: US-MYLANLABS-2018M1088551

PATIENT
  Sex: Female
  Weight: 52 kg

DRUGS (1)
  1. ESTRADIOL TRANSDERMAL SYSTEM [Suspect]
     Active Substance: ESTRADIOL
     Indication: HORMONE LEVEL ABNORMAL
     Dosage: 0.05 MILLIGRAM
     Route: 062

REACTIONS (4)
  - Drug ineffective [Not Recovered/Not Resolved]
  - Product adhesion issue [Unknown]
  - Product quality issue [Unknown]
  - Off label use [Not Recovered/Not Resolved]
